FAERS Safety Report 6790401 (Version 17)
Quarter: 2012Q4

REPORT INFORMATION
  Report Type: 
  Country: CA (occurrence: CA)
  Receive Date: 20081017
  Receipt Date: 20121111
  Transmission Date: 20130627
  Serious: Yes (Death, Hospitalization, Other)
  Sender: FDA-Public Use
  Company Number: PHHY2008CA11575

PATIENT
  Sex: Male

DRUGS (5)
  1. SANDOSTATIN LAR [Suspect]
     Indication: CARCINOID TUMOUR
     Dosage: 30 mg, QMO
     Route: 030
     Dates: start: 20071203
  2. LOMOTIL [Concomitant]
  3. FENTANYL [Concomitant]
  4. TRAMACET [Concomitant]
  5. IMODIUM [Concomitant]

REACTIONS (37)
  - Malignant neoplasm progression [Fatal]
  - Insomnia [Unknown]
  - Lung infection [Unknown]
  - Intestinal obstruction [Unknown]
  - Diarrhoea [Unknown]
  - Bacteraemia [Unknown]
  - Amnesia [Not Recovered/Not Resolved]
  - Weight decreased [Unknown]
  - Productive cough [Unknown]
  - Haemoptysis [Unknown]
  - Blood pressure decreased [Unknown]
  - Dyspnoea [Unknown]
  - Fall [Unknown]
  - Contusion [Unknown]
  - Excoriation [Unknown]
  - Oral candidiasis [Unknown]
  - Dizziness [Unknown]
  - Nausea [Not Recovered/Not Resolved]
  - Decreased appetite [Unknown]
  - Asthenia [Unknown]
  - Heart rate decreased [Unknown]
  - Blood pressure systolic increased [Unknown]
  - Flushing [Unknown]
  - Muscle spasms [Not Recovered/Not Resolved]
  - Confusional state [Unknown]
  - Anxiety [Unknown]
  - Restlessness [Unknown]
  - Pain [Unknown]
  - Frequent bowel movements [Unknown]
  - Gastrointestinal pain [Unknown]
  - Bowel movement irregularity [Unknown]
  - Abdominal pain [Unknown]
  - Back pain [Recovering/Resolving]
  - Constipation [Unknown]
  - Abnormal dreams [Unknown]
  - Frustration [Unknown]
  - Balance disorder [Unknown]
